FAERS Safety Report 4642784-3 (Version None)
Quarter: 2005Q2

REPORT INFORMATION
  Report Type: 
  Country: None (occurrence: None)
  Receive Date: 20050421
  Receipt Date: 20050408
  Transmission Date: 20051028
  Serious: Yes (Other)
  Sender: FDA-Public Use
  Company Number: GXBR2005US00738

PATIENT

DRUGS (1)
  1. RIBAVIRIN [Suspect]

REACTIONS (1)
  - VENTRICULAR TACHYCARDIA [None]
